FAERS Safety Report 13992946 (Version 2)
Quarter: 2018Q3

REPORT INFORMATION
  Report Type: Spontaneous
  Country: US (occurrence: US)
  Receive Date: 20170920
  Receipt Date: 20180920
  Transmission Date: 20181010
  Serious: No
  Sender: FDA-Public Use
  Company Number: US-IMPAX LABORATORIES, INC-2017-IPXL-01967

PATIENT
  Age: 49 Year
  Sex: Male
  Weight: 76 kg

DRUGS (6)
  1. DEXEDRINE SPANSULE [Suspect]
     Active Substance: DEXTROAMPHETAMINE SULFATE
     Dosage: ONE OR TWICE A WEEK, UNK
     Route: 048
  2. WELLBUTRIN [Concomitant]
     Active Substance: BUPROPION HYDROCHLORIDE
     Indication: ATTENTION DEFICIT/HYPERACTIVITY DISORDER
     Dosage: UNK
     Route: 065
  3. LIPITOR [Concomitant]
     Active Substance: ATORVASTATIN CALCIUM
     Indication: PRODUCT USED FOR UNKNOWN INDICATION
     Dosage: UNK
     Route: 065
     Dates: start: 201702
  4. QUETIAPINE. [Concomitant]
     Active Substance: QUETIAPINE
     Indication: ANXIETY
     Dosage: UNK
     Route: 065
  5. DEXEDRINE SPANSULE [Suspect]
     Active Substance: DEXTROAMPHETAMINE SULFATE
     Indication: ATTENTION DEFICIT/HYPERACTIVITY DISORDER
     Dosage: UNK
     Route: 048
  6. DEXEDRINE SPANSULE [Suspect]
     Active Substance: DEXTROAMPHETAMINE SULFATE
     Dosage: 15 MG, 2 DF, 2 /DAY
     Route: 048
     Dates: start: 20170403

REACTIONS (3)
  - Therapeutic response decreased [Unknown]
  - Heart rate increased [Recovering/Resolving]
  - Fatigue [Recovering/Resolving]

NARRATIVE: CASE EVENT DATE: 201706
